FAERS Safety Report 10799133 (Version 1)
Quarter: 2015Q1

REPORT INFORMATION
  Report Type: Report from Study
  Country: DE (occurrence: DE)
  Receive Date: 20150216
  Receipt Date: 20150216
  Transmission Date: 20150721
  Serious: Yes (Death, Hospitalization)
  Sender: FDA-Public Use
  Company Number: DE-MILLENNIUM PHARMACEUTICALS, INC.-2011-03625

PATIENT
  Age: 73 Year
  Sex: Female

DRUGS (12)
  1. TAVANIC [Concomitant]
     Active Substance: LEVOFLOXACIN
     Dosage: UNK
     Dates: start: 20110409, end: 20110503
  2. TAVANIC [Concomitant]
     Active Substance: LEVOFLOXACIN
     Dosage: 250 MG, UNK
     Dates: start: 20110602, end: 20110603
  3. ACICLOVIR [Concomitant]
     Active Substance: ACYCLOVIR
     Dosage: 400 MG, UNK
     Dates: start: 20110520, end: 20110614
  4. VELCADE [Suspect]
     Active Substance: BORTEZOMIB
     Indication: PLASMA CELL MYELOMA
     Dosage: UNK
     Route: 065
     Dates: start: 20110415, end: 20110426
  5. DOXORUBICIN [Concomitant]
     Active Substance: DOXORUBICIN
     Indication: PLASMA CELL MYELOMA
     Dosage: UNK
     Dates: start: 20110415, end: 20110426
  6. TAVANIC [Concomitant]
     Active Substance: LEVOFLOXACIN
     Dosage: 250 MG, UNK
     Dates: start: 20110510, end: 20110516
  7. ACICLOVIR [Concomitant]
     Active Substance: ACYCLOVIR
     Dosage: 400 MG, UNK
     Dates: start: 20110415, end: 20110502
  8. HEPARIN [Concomitant]
     Active Substance: HEPARIN SODIUM
     Dosage: 25000 UNK, UNK
     Dates: start: 20110510, end: 20110515
  9. DEXAMETHASONE. [Concomitant]
     Active Substance: DEXAMETHASONE
     Indication: PLASMA CELL MYELOMA
     Dosage: UNK
     Dates: start: 20110415, end: 20110426
  10. TAVANIC [Concomitant]
     Active Substance: LEVOFLOXACIN
     Dosage: 250 MG, UNK
     Dates: start: 20110520, end: 20110520
  11. FILGRASTIM [Concomitant]
     Active Substance: FILGRASTIM
     Dosage: UNK
     Dates: start: 20110427, end: 20110502
  12. HEPARIN [Concomitant]
     Active Substance: HEPARIN SODIUM
     Dosage: UNK
     Dates: start: 20110523, end: 20110702

REACTIONS (1)
  - Infection [Fatal]

NARRATIVE: CASE EVENT DATE: 20110430
